FAERS Safety Report 6543710-2 (Version None)
Quarter: 2010Q1

REPORT INFORMATION
  Report Type: 
  Country: None (occurrence: None)
  Receive Date: 20100120
  Receipt Date: 20100119
  Transmission Date: 20100710
  Serious: Yes (Other)
  Sender: FDA-Public Use
  Company Number: DE-PFIZER INC-2010006638

PATIENT
  Age: 59 Year
  Sex: Female
  Weight: 57 kg

DRUGS (8)
  1. AZULFIDINE [Suspect]
     Indication: SPINAL OSTEOARTHRITIS
     Dosage: 2 G, 1X/DAY
     Dates: start: 20080611, end: 20090122
  2. ENBREL [Suspect]
     Indication: SPINAL OSTEOARTHRITIS
     Dosage: 1 X 25 MG, WEEKLY
     Dates: start: 20090122, end: 20091214
  3. HUMIRA [Suspect]
     Indication: SPINAL OSTEOARTHRITIS
     Dosage: 1 X 40 MG/DAY, EVERY 2 WEEKS
     Dates: start: 20070927, end: 20080611
  4. REMICADE [Suspect]
     Indication: SPINAL OSTEOARTHRITIS
     Dosage: 1 X 200 MG, EVERY 6 WEEKS
     Dates: start: 20070327, end: 20070927
  5. CELEBREX [Concomitant]
  6. CALCIMAGON [Concomitant]
  7. MAGNESIUM [Concomitant]
  8. ACTONEL [Concomitant]

REACTIONS (2)
  - CARDIOMEGALY [None]
  - PERICARDIAL EFFUSION [None]
